FAERS Safety Report 16860727 (Version 2)
Quarter: 2019Q4

REPORT INFORMATION
  Report Type: Report from Study
  Country: BR (occurrence: BR)
  Receive Date: 20190927
  Receipt Date: 20191209
  Transmission Date: 20200122
  Serious: Yes (Hospitalization)
  Sender: FDA-Public Use
  Company Number: PHHY2019BR221611

PATIENT
  Age: 40 Year
  Sex: Female

DRUGS (2)
  1. COSENTYX [Suspect]
     Active Substance: SECUKINUMAB
     Dosage: UNK (FIFTH LOADING DOSE)
     Route: 065
     Dates: start: 20190919
  2. COSENTYX [Suspect]
     Active Substance: SECUKINUMAB
     Indication: ANKYLOSING SPONDYLITIS
     Dosage: UNK
     Route: 065
     Dates: start: 20190822

REACTIONS (9)
  - Slow speech [Unknown]
  - Gastrointestinal infection [Not Recovered/Not Resolved]
  - Arthritis [Recovering/Resolving]
  - Spondylitis [Recovering/Resolving]
  - Pain [Recovering/Resolving]
  - Gastrointestinal disorder [Unknown]
  - Malaise [Unknown]
  - Asthenia [Unknown]
  - Gait disturbance [Recovering/Resolving]

NARRATIVE: CASE EVENT DATE: 20191128
